FAERS Safety Report 8009424-7 (Version None)
Quarter: 2011Q4

REPORT INFORMATION
  Report Type: 
  Country: None (occurrence: None)
  Receive Date: 20111227
  Receipt Date: 20111213
  Transmission Date: 20120403
  Serious: Yes (Hospitalization, Disabling, Other)
  Sender: FDA-Public Use
  Company Number: MX-SANOFI-AVENTIS-2011SA081877

PATIENT
  Age: 58 Year
  Sex: Female

DRUGS (3)
  1. INSULINS AND ANALOGUES,FAST-ACTING [Suspect]
     Dosage: DOSE: 1 IU FOR EACH 50 MG/DL OF GLUCOSE
     Route: 058
     Dates: start: 20111001
  2. LANTUS [Suspect]
     Route: 058
     Dates: start: 20111001
  3. LANTUS [Suspect]
     Route: 058
     Dates: start: 20100101, end: 20111001

REACTIONS (3)
  - HYPERGLYCAEMIA [None]
  - DEPRESSION [None]
  - LOCALISED INFECTION [None]
